FAERS Safety Report 11202151 (Version 5)
Quarter: 2015Q4

REPORT INFORMATION
  Report Type: Report from Study
  Country: AT (occurrence: AT)
  Receive Date: 20150619
  Receipt Date: 20151006
  Transmission Date: 20160304
  Serious: Yes (Death, Hospitalization)
  Sender: FDA-Public Use
  Company Number: PHHY2015AT036859

PATIENT
  Age: 59 Year
  Sex: Female
  Weight: 80 kg

DRUGS (8)
  1. FORTECORTIN [Concomitant]
     Active Substance: DEXAMETHASONE
     Indication: PRODUCT USED FOR UNKNOWN INDICATION
     Dosage: 4 MG, 1-0-1 DAY BEFORE THERAPY, DAY OF CHEMOTHERAPY, DAY AFTER THERAPY
     Route: 065
  2. AFINITOR [Suspect]
     Active Substance: EVEROLIMUS
     Indication: BREAST CANCER
     Route: 065
     Dates: end: 20150609
  3. GRANISETRON [Concomitant]
     Active Substance: GRANISETRON
     Indication: PRODUCT USED FOR UNKNOWN INDICATION
     Dosage: 2 MG, 1-0-0- FOR 3-5 DAYS AFTER CHEMOTHERAPY
     Route: 065
  4. PANTOLOC [Concomitant]
     Active Substance: PANTOPRAZOLE SODIUM
     Indication: PRODUCT USED FOR UNKNOWN INDICATION
     Dosage: 40 MG, 1-0-0
     Route: 065
  5. LAEVOLAC [Concomitant]
     Active Substance: LACTULOSE
     Indication: CONSTIPATION
     Dosage: 1-2- MEASURING CUPS
     Route: 065
  6. CALCIUM GLYCEROPHOSPHATE\CELLULOSE\POLYETHYLENE GLYCOL\SACCHARIN SODIUM\SODIUM HYDROXIDE\SODIUM LAURYL SULFATE\SODIUM MAGNESIUM SILICATE\SODIUM MONOFLUOROPHOSPHATE\SORBITOL\WATER [Concomitant]
     Active Substance: CALCIUM GLYCEROPHOSPHATE\POLYETHYLENE GLYCOLS\POWDERED CELLULOSE\SACCHARIN SODIUM DIHYDRATE\SODIUM HYDROXIDE\SODIUM LAURYL SULFATE\SODIUM MAGNESIUM SILICATE\SODIUM MONOFLUOROPHOSPHATE\SORBITOL\WATER
     Indication: CONSTIPATION
     Dosage: 1-2- BAGS
     Route: 065
  7. XGEVA [Concomitant]
     Active Substance: DENOSUMAB
     Indication: PRODUCT USED FOR UNKNOWN INDICATION
     Dosage: 120 MG, UNK
     Route: 058
     Dates: start: 20150619
  8. ABRAXANE [Concomitant]
     Active Substance: PACLITAXEL
     Indication: PRODUCT USED FOR UNKNOWN INDICATION
     Dosage: 1 DF, WEEDLY, CYCLE I
     Route: 065
     Dates: start: 20150616

REACTIONS (39)
  - Metastasis [Unknown]
  - Oedema peripheral [Unknown]
  - Haematoma [Not Recovered/Not Resolved]
  - Pyrexia [Unknown]
  - Alopecia [Recovered/Resolved]
  - C-reactive protein increased [Unknown]
  - Dyspnoea exertional [Not Recovered/Not Resolved]
  - House dust allergy [Unknown]
  - Eye haemorrhage [Unknown]
  - Metastases to liver [Unknown]
  - Dysgeusia [Not Recovered/Not Resolved]
  - Epistaxis [Recovered/Resolved]
  - Bone pain [Recovered/Resolved]
  - Pain [Unknown]
  - Mucosal dryness [Recovered/Resolved]
  - General physical health deterioration [Recovered/Resolved]
  - Nasal congestion [Recovered/Resolved]
  - General physical health deterioration [Not Recovered/Not Resolved]
  - Metastases to bone [Unknown]
  - Insomnia [Not Recovered/Not Resolved]
  - Metastases to lymph nodes [Unknown]
  - Thrombocytopenia [Not Recovered/Not Resolved]
  - Epistaxis [Unknown]
  - Pancytopenia [Not Recovered/Not Resolved]
  - Skin abrasion [Recovered/Resolved]
  - Fatigue [Not Recovered/Not Resolved]
  - Death [Fatal]
  - Asthma [Unknown]
  - Seasonal allergy [Unknown]
  - Metastases to central nervous system [Unknown]
  - Platelet count decreased [Unknown]
  - Conjunctival haemorrhage [Unknown]
  - Contusion [Not Recovered/Not Resolved]
  - Angular cheilitis [Recovered/Resolved]
  - Blood chloride increased [Unknown]
  - Hypotension [Unknown]
  - Stomatitis [Recovered/Resolved]
  - Haemoglobin decreased [Unknown]
  - Discomfort [Unknown]

NARRATIVE: CASE EVENT DATE: 20140630
